FAERS Safety Report 9469602 (Version 1)
Quarter: 2013Q3

REPORT INFORMATION
  Report Type: Spontaneous
  Country: US (occurrence: US)
  Receive Date: 20130822
  Receipt Date: 20130822
  Transmission Date: 20140515
  Serious: Yes (Hospitalization)
  Sender: FDA-Public Use
  Company Number: US-BRISTOL-MYERS SQUIBB COMPANY-19199900

PATIENT
  Sex: Female

DRUGS (1)
  1. REYATAZ CAPS [Suspect]

REACTIONS (2)
  - Gastrostomy [Unknown]
  - Drug administration error [Unknown]
